FAERS Safety Report 15357616 (Version 2)
Quarter: 2018Q4

REPORT INFORMATION
  Report Type: Spontaneous
  Country: US (occurrence: US)
  Receive Date: 20180906
  Receipt Date: 20181008
  Transmission Date: 20190204
  Serious: No
  Sender: FDA-Public Use
  Company Number: US-SA-2018SA240314

PATIENT
  Age: 66 Year
  Sex: Female
  Weight: 103.41 kg

DRUGS (2)
  1. JANUVIA [Concomitant]
     Active Substance: SITAGLIPTIN PHOSPHATE
     Indication: DIABETES MELLITUS
     Dosage: 10 MG, QD
     Route: 048
  2. LANTUS SOLOSTAR [Suspect]
     Active Substance: INSULIN GLARGINE
     Dosage: 60 U, QD EVERY PM
     Route: 065
     Dates: start: 201511

REACTIONS (5)
  - Glycosylated haemoglobin increased [Unknown]
  - Crying [Unknown]
  - Dyspnoea [Unknown]
  - Burning sensation [Unknown]
  - Pruritus [Unknown]
